FAERS Safety Report 12226621 (Version 4)
Quarter: 2016Q2

REPORT INFORMATION
  Report Type: Spontaneous
  Country: US (occurrence: US)
  Receive Date: 20160331
  Receipt Date: 20160627
  Transmission Date: 20160815
  Serious: Yes (Hospitalization, Other)
  Sender: FDA-Public Use
  Company Number: US-PFIZER INC-2016178165

PATIENT
  Age: 31 Year
  Sex: Female
  Weight: 91.61 kg

DRUGS (15)
  1. MELATONIN [Concomitant]
     Active Substance: MELATONIN
     Dosage: 3 MG, AS NEEDED ( NIGHTLY AS NEEDED)
     Route: 048
  2. ZOLOFT [Concomitant]
     Active Substance: SERTRALINE HYDROCHLORIDE
     Dosage: 150 MG, DAILY (FOR TWO WEEKS)
     Route: 048
  3. FERROUS GLUCONATE [Concomitant]
     Active Substance: FERROUS GLUCONATE
     Dosage: 324 MG, UNK (37.5 MG ELEMENTAL) TAB)
     Route: 048
  4. LYRICA [Suspect]
     Active Substance: PREGABALIN
     Indication: SEIZURE
     Dosage: UNK (150/150)
     Dates: start: 20100813
  5. LYRICA [Suspect]
     Active Substance: PREGABALIN
     Dosage: 150 MG, 2X/DAY
     Route: 048
  6. DEPAKOTE [Concomitant]
     Active Substance: DIVALPROEX SODIUM
     Dosage: 500 MG, 2X/DAY
     Route: 048
  7. LYRICA [Suspect]
     Active Substance: PREGABALIN
     Indication: EPILEPSY
     Dosage: 2880 MG, 1X/DAY (96 CAPSULES, 300 MG)
     Dates: start: 20150416, end: 20150416
  8. FOLATE [Concomitant]
     Active Substance: FOLATE SODIUM
     Indication: EPILEPSY
     Dosage: 1 MG, 2X/DAY
  9. ZOLOFT [Concomitant]
     Active Substance: SERTRALINE HYDROCHLORIDE
     Dosage: 200 MG, DAILY
     Route: 048
  10. VITAMIN D2 [Concomitant]
     Active Substance: ERGOCALCIFEROL
     Dosage: 50000 IU, UNK (EVERY 2 WEEKS)
     Route: 048
  11. SERTRALINE [Concomitant]
     Active Substance: SERTRALINE HYDROCHLORIDE
     Indication: DEPRESSION
     Dosage: 100 MG, 1X/DAY
     Dates: start: 2013
  12. FOLVITE [Concomitant]
     Active Substance: FOLIC ACID
     Dosage: 2 MG, DAILY
     Route: 048
  13. APTIOM [Suspect]
     Active Substance: ESLICARBAZEPINE ACETATE
     Indication: SEIZURE
     Dosage: 800 MG, 1X/DAY (HS, EVERY EVENING)
     Route: 048
     Dates: start: 20141204, end: 20150420
  14. APTIOM [Suspect]
     Active Substance: ESLICARBAZEPINE ACETATE
     Indication: PARTIAL SEIZURES
     Dosage: 800 MG, 1X/DAY (QHS)
     Route: 048
     Dates: start: 20141225, end: 20150417
  15. ZOLOFT [Concomitant]
     Active Substance: SERTRALINE HYDROCHLORIDE
     Dosage: 100 MG, UNK

REACTIONS (25)
  - Drug ineffective [Unknown]
  - Memory impairment [Unknown]
  - Confusional state [Unknown]
  - Intentional overdose [Recovered/Resolved]
  - Impulse-control disorder [Unknown]
  - Diarrhoea [Unknown]
  - Fatigue [Not Recovered/Not Resolved]
  - Impulsive behaviour [Unknown]
  - Feeling abnormal [Unknown]
  - Depression [Unknown]
  - Dreamy state [Unknown]
  - Movement disorder [Unknown]
  - Suicidal ideation [Recovered/Resolved]
  - Mood altered [Not Recovered/Not Resolved]
  - Hypoglycaemia [Unknown]
  - Condition aggravated [Unknown]
  - Abasia [Unknown]
  - Malaise [Unknown]
  - Tardive dyskinesia [Unknown]
  - Dizziness [Unknown]
  - Suicide attempt [Recovered/Resolved]
  - Loss of consciousness [Unknown]
  - Irritability [Unknown]
  - Speech disorder [Unknown]
  - Hunger [Unknown]

NARRATIVE: CASE EVENT DATE: 20150416
